FAERS Safety Report 4891923-8 (Version None)
Quarter: 2006Q1

REPORT INFORMATION
  Report Type: 
  Country: None (occurrence: None)
  Receive Date: 20060123
  Receipt Date: 20060109
  Transmission Date: 20060701
  Serious: Yes (Hospitalization)
  Sender: FDA-Public Use
  Company Number: 217147

PATIENT
  Age: 40 Year
  Sex: Female
  Weight: 54 kg

DRUGS (4)
  1. MABTHERA (RITUXIMAB) CONC FOR SOLUTION FOR INFUSION [Suspect]
     Indication: NON-HODGKIN'S LYMPHOMA
     Dosage: 375 MG/KG, 1/WEEK, INTRAVENOUS
     Route: 042
     Dates: start: 20040329, end: 20050707
  2. CYCLOPHOSPHAMIDE [Suspect]
     Indication: NON-HODGKIN'S LYMPHOMA
     Dates: start: 20050216, end: 20050531
  3. METHOTREXATE [Suspect]
     Indication: NON-HODGKIN'S LYMPHOMA
     Dates: start: 20050216, end: 20050531
  4. FLUOROURACIL [Suspect]
     Indication: NON-HODGKIN'S LYMPHOMA
     Dates: start: 20050216, end: 20050531

REACTIONS (15)
  - BLOOD CHOLESTEROL INCREASED [None]
  - BONE MARROW FAILURE [None]
  - CANDIDIASIS [None]
  - CHOLELITHIASIS [None]
  - LEUKOPENIA [None]
  - LYMPHADENOPATHY [None]
  - NEUTROPHIL PERCENTAGE INCREASED [None]
  - PLATELET COUNT DECREASED [None]
  - PNEUMOCYSTIS JIROVECI PNEUMONIA [None]
  - PROTEIN TOTAL DECREASED [None]
  - RESPIRATORY FAILURE [None]
  - SHIFT TO THE LEFT [None]
  - SINUS TACHYCARDIA [None]
  - THERAPY NON-RESPONDER [None]
  - VIRAL INFECTION [None]
